FAERS Safety Report 5519014-3 (Version None)
Quarter: 2007Q4

REPORT INFORMATION
  Report Type: 
  Country: None (occurrence: None)
  Receive Date: 20071114
  Receipt Date: 20071114
  Transmission Date: 20080405
  Serious: No
  Sender: FDA-Public Use
  Company Number: None

PATIENT

DRUGS (6)
  1. BLEOMYCIN [Suspect]
     Dosage: INJECTABLE
  2. ZANOSAR [Suspect]
     Dosage: INJECTABLE
  3. IDARUBICIN HCL [Suspect]
     Dosage: INJECTABLE
  4. VINORELBINE TARTRATE [Suspect]
     Dosage: INJECTABLE
  5. FLUDARABINE PHOSPHATE [Suspect]
     Dosage: INJECTABLE
  6. MITOXANTRONE [Suspect]
     Dosage: INJECTABLE

REACTIONS (2)
  - MEDICATION ERROR [None]
  - PHARMACEUTICAL PRODUCT COMPLAINT [None]
